FAERS Safety Report 11377857 (Version 2)
Quarter: 2015Q3

REPORT INFORMATION
  Report Type: Spontaneous
  Country: US (occurrence: US)
  Receive Date: 20150811
  Receipt Date: 20150903
  Transmission Date: 20151125
  Serious: No
  Sender: FDA-Public Use
  Company Number: US-ELI_LILLY_AND_COMPANY-US200909001847

PATIENT
  Age: 32 Year
  Sex: Female

DRUGS (4)
  1. DOCOSAHEXANOIC ACID [Concomitant]
     Dates: start: 200904
  2. HUMALOG [Suspect]
     Active Substance: INSULIN LISPRO
     Indication: TYPE 1 DIABETES MELLITUS
     Dates: start: 200809
  3. PRENATAL VITAMINS /01549301/ [Concomitant]
     Active Substance: VITAMINS
     Dates: start: 200903
  4. HUMULIN N [Suspect]
     Active Substance: INSULIN HUMAN
     Dosage: UNK, EACH EVENING
     Dates: start: 200904

REACTIONS (2)
  - Poor quality drug administered [Unknown]
  - Exposure during pregnancy [Unknown]

NARRATIVE: CASE EVENT DATE: 200904
